FAERS Safety Report 14128176 (Version 1)
Quarter: 2017Q4

REPORT INFORMATION
  Report Type: Spontaneous
  Country: US (occurrence: None)
  Receive Date: 20171025
  Receipt Date: 20171025
  Transmission Date: 20180321
  Serious: No
  Sender: FDA-Public Use
  Company Number: None

PATIENT
  Age: 77 Year
  Sex: Male
  Weight: 94.17 kg

DRUGS (1)
  1. SACUBITRIL/VALSARTAN [Suspect]
     Active Substance: SACUBITRIL\VALSARTAN
     Indication: CARDIAC FAILURE CONGESTIVE
     Dosage: 24.5/25.5 MG, EVERY DAY, PO
     Route: 048
     Dates: start: 20170721, end: 20171016

REACTIONS (4)
  - Weight increased [None]
  - Fatigue [None]
  - Dyspnoea [None]
  - Hypotension [None]

NARRATIVE: CASE EVENT DATE: 20171016
